FAERS Safety Report 8017574-4 (Version None)
Quarter: 2011Q4

REPORT INFORMATION
  Report Type: 
  Country: None (occurrence: None)
  Receive Date: 20111229
  Receipt Date: 20111229
  Transmission Date: 20120403
  Serious: Yes (Hospitalization)
  Sender: FDA-Public Use
  Company Number: None

PATIENT
  Age: 74 Year
  Sex: Female
  Weight: 111 kg

DRUGS (13)
  1. PLAVIX [Suspect]
     Indication: CORONARY ARTERY DISEASE
     Dosage: 75MG DAILY PO CHRONIC
     Route: 048
  2. NAPROXEN (ALEVE) [Suspect]
     Dosage: 220MG Q8HR PRN PO
     Route: 048
  3. FIBERCON [Concomitant]
  4. ZETIA [Concomitant]
  5. SYNTHROID [Concomitant]
  6. OSTEO BIFLEX [Concomitant]
  7. CALCIUM + VIT D [Concomitant]
  8. ASPIRIN [Suspect]
     Indication: CORONARY ARTERY DISEASE
     Dosage: 650MG DAILY PO
     Route: 048
  9. CRESTOR [Concomitant]
  10. MICARDIS [Concomitant]
  11. FISH OIL [Concomitant]
  12. M.V.I. [Concomitant]
  13. TOPROL-XL [Concomitant]

REACTIONS (3)
  - DIVERTICULUM [None]
  - LARGE INTESTINAL HAEMORRHAGE [None]
  - RECTAL HAEMORRHAGE [None]
